FAERS Safety Report 10065938 (Version 1)
Quarter: 2014Q2

REPORT INFORMATION
  Report Type: Spontaneous
  Country: US (occurrence: US)
  Receive Date: 20140408
  Receipt Date: 20140408
  Transmission Date: 20141212
  Serious: No
  Sender: FDA-Public Use
  Company Number: US-PFIZER INC-2014095802

PATIENT
  Age: 61 Year
  Sex: Female
  Weight: 86.17 kg

DRUGS (14)
  1. SKELAXIN [Suspect]
     Indication: MUSCLE RELAXANT THERAPY
     Dosage: 800 MG, 3X/DAY
     Route: 048
     Dates: start: 201310, end: 201312
  2. NOVOLOG [Concomitant]
     Dosage: UNK
  3. SYMLIN [Concomitant]
     Dosage: 60 UG, 3X/DAY
  4. LEVOTHYROXINE [Concomitant]
     Dosage: 137 UG, 1X/DAY
  5. CELEBREX [Concomitant]
     Indication: ARTHRITIS
     Dosage: 200 MG, 2X/DAY
  6. SINGULAIR [Concomitant]
     Dosage: 10 MG, 1X/DAY
  7. ASPIRIN [Concomitant]
     Dosage: 81 MG, 1X/DAY
  8. PROAIR [Concomitant]
     Dosage: UNK, AS NEEDED
     Route: 055
  9. PROZAC [Concomitant]
     Dosage: 20 MG, 1X/DAY
  10. KLONOPIN [Concomitant]
     Dosage: 1 MG, 3X/DAY
  11. TRAZODONE [Concomitant]
     Dosage: 50 MG, 1X/DAY
  12. VITAMIN D3 [Concomitant]
     Dosage: 2000 MG, 1X/DAY
  13. SIMVASTATIN [Concomitant]
     Indication: BLOOD CHOLESTEROL INCREASED
     Dosage: 40 MG, 1X/DAY
  14. PREMPRO [Concomitant]
     Dosage: 0.625/2MG,UNK

REACTIONS (1)
  - Drug ineffective [Unknown]
